FAERS Safety Report 17342786 (Version 1)
Quarter: 2020Q1

REPORT INFORMATION
  Report Type: Spontaneous
  Country: US (occurrence: US)
  Receive Date: 20200129
  Receipt Date: 20200129
  Transmission Date: 20200409
  Serious: No
  Sender: FDA-Public Use
  Company Number: US-ALLERGAN-1909551US

PATIENT
  Sex: Female
  Weight: 46.72 kg

DRUGS (24)
  1. FLUTICASONE FUROATE [Concomitant]
     Active Substance: FLUTICASONE FUROATE
     Route: 055
  2. IMIPRAMINE [Concomitant]
     Active Substance: IMIPRAMINE
     Dosage: 3 DF, QD
     Route: 048
  3. FLEXERIL [Concomitant]
     Active Substance: CYCLOBENZAPRINE HYDROCHLORIDE
     Dosage: 10 MG, PRN
     Route: 048
  4. LINZESS [Concomitant]
     Active Substance: LINACLOTIDE
     Dosage: 1 DF, QD
     Route: 048
  5. BOTOX [Suspect]
     Active Substance: ONABOTULINUMTOXINA
     Indication: PRODUCT USED FOR UNKNOWN INDICATION
     Dosage: UNK, SINGLE
     Route: 030
  6. NADOLOL. [Concomitant]
     Active Substance: NADOLOL
     Dosage: 2 DF, QD
     Route: 048
  7. ONDANSETRON HYDROCHLORIDE. [Concomitant]
     Active Substance: ONDANSETRON HYDROCHLORIDE
     Dosage: 1 DF, PRN
     Route: 048
  8. OMEPRAZOLE. [Concomitant]
     Active Substance: OMEPRAZOLE
     Dosage: 1 DF, QD
     Route: 048
  9. BACTRIM [Concomitant]
     Active Substance: SULFAMETHOXAZOLE\TRIMETHOPRIM
     Dosage: UNK, BID
     Route: 048
  10. LEVBID [Concomitant]
     Active Substance: HYOSCYAMINE SULFATE
     Dosage: 1 DF, Q12H
     Route: 048
  11. LIALDA [Concomitant]
     Active Substance: MESALAMINE
     Dosage: 2 DF, QD
     Route: 048
  12. ALOE VERA [Concomitant]
     Active Substance: ALOE VERA LEAF
     Dosage: 100 MG, QD
     Route: 048
  13. CALCIUM CITRATE +D [Concomitant]
     Active Substance: CALCIUM CITRATE\VITAMIN D
     Dosage: 400 MG, QD
  14. VITAMIN B12 [Concomitant]
     Active Substance: CYANOCOBALAMIN
     Dosage: 1 DF
     Route: 060
  15. CIPRO [Concomitant]
     Active Substance: CIPROFLOXACIN HYDROCHLORIDE
     Dosage: 1 DF, Q WEEK
     Route: 048
  16. VITAMIN D3 [Concomitant]
     Active Substance: CHOLECALCIFEROL
     Dosage: 1 DF
     Route: 048
  17. VENTOLIN HFA [Concomitant]
     Active Substance: ALBUTEROL SULFATE
     Dosage: UNK, QOD
     Route: 055
  18. FOLIC ACID. [Concomitant]
     Active Substance: FOLIC ACID
     Dosage: 1 DF, QD
     Route: 048
  19. OXYGEN. [Concomitant]
     Active Substance: OXYGEN
  20. UMECLIDINIUM [Concomitant]
     Active Substance: UMECLIDINIUM BROMIDE
     Dosage: 62.5 ?G
     Route: 055
  21. PROLIA [Concomitant]
     Active Substance: DENOSUMAB
  22. CIMZIA [Concomitant]
     Active Substance: CERTOLIZUMAB PEGOL
  23. AZATHIOPRINE. [Concomitant]
     Active Substance: AZATHIOPRINE
     Dosage: 1 DF, QD
     Route: 048
  24. BETHANECHOL [Concomitant]
     Active Substance: BETHANECHOL
     Dosage: 3 DF, TID
     Route: 048

REACTIONS (1)
  - Dysphagia [Unknown]
